FAERS Safety Report 20493927 (Version 1)
Quarter: 2022Q1

REPORT INFORMATION
  Report Type: Spontaneous
  Country: US (occurrence: US)
  Receive Date: 20220221
  Receipt Date: 20220221
  Transmission Date: 20220423
  Serious: No
  Sender: FDA-Public Use
  Company Number: US-CELGENE-USA-20220205031

PATIENT
  Age: 47 Year
  Sex: Male

DRUGS (1)
  1. ZEPOSIA [Suspect]
     Active Substance: OZANIMOD HYDROCHLORIDE
     Indication: Clinically isolated syndrome
     Dosage: .92 MILLIGRAM
     Route: 048
     Dates: start: 202104, end: 202108

REACTIONS (8)
  - Muscle spasms [Unknown]
  - Gait disturbance [Unknown]
  - Hypoaesthesia [Unknown]
  - Confusional state [Unknown]
  - Vomiting [Unknown]
  - Fatigue [Unknown]
  - Hepatic enzyme increased [Unknown]
  - Urinary tract infection [Unknown]

NARRATIVE: CASE EVENT DATE: 20210801
